FAERS Safety Report 4872072-1 (Version None)
Quarter: 2006Q1

REPORT INFORMATION
  Report Type: 
  Country: None (occurrence: None)
  Receive Date: 20060104
  Receipt Date: 20050715
  Transmission Date: 20060701
  Serious: Yes (Other)
  Sender: FDA-Public Use
  Company Number: PHBS2005IT10255

PATIENT
  Age: 68 Year
  Sex: Female

DRUGS (5)
  1. ZOMETA [Suspect]
     Indication: METASTASES TO BONE
     Dosage: 4 MG, TIW
     Route: 042
     Dates: start: 20041001, end: 20050601
  2. PACLITAXEL [Concomitant]
     Indication: BREAST CANCER STAGE IV
     Dosage: UNK, UNK
     Dates: start: 20050401, end: 20050601
  3. FLUOROURACIL [Concomitant]
     Indication: BREAST CANCER STAGE IV
     Dosage: 6 CYCLES OF FAC
     Dates: start: 20050101, end: 20050601
  4. ADRIAMYCIN PFS [Concomitant]
     Indication: BREAST CANCER STAGE IV
     Dosage: 6 CYCLES OF FAC
     Dates: start: 20050101, end: 20050601
  5. CYCLOPHOSPHAMIDE [Concomitant]
     Indication: BREAST CANCER STAGE IV
     Dates: start: 20050101, end: 20050601

REACTIONS (8)
  - BONE PAIN [None]
  - DENTAL OPERATION [None]
  - MALIGNANT NEOPLASM PROGRESSION [None]
  - OSTEONECROSIS [None]
  - PURULENT DISCHARGE [None]
  - SUPERINFECTION [None]
  - SWELLING [None]
  - TOOTH LOSS [None]
